FAERS Safety Report 5447585-4 (Version None)
Quarter: 2007Q3

REPORT INFORMATION
  Report Type: 
  Country: None (occurrence: None)
  Receive Date: 20070905
  Receipt Date: 20070827
  Transmission Date: 20080115
  Serious: Yes (Other)
  Sender: FDA-Public Use
  Company Number: 2007AL003520

PATIENT
  Age: 57 Year
  Sex: Female

DRUGS (2)
  1. SERTRALINE HYDROCHLORIDE [Suspect]
     Indication: DEPRESSION
     Dosage: 100 MG;QD;PO
     Route: 048
     Dates: start: 20011221
  2. LANSOPRAZOLE [Concomitant]

REACTIONS (1)
  - ATRIOVENTRICULAR BLOCK FIRST DEGREE [None]
